FAERS Safety Report 18553189 (Version 1)
Quarter: 2020Q4

REPORT INFORMATION
  Report Type: Other
  Country: US (occurrence: US)
  Receive Date: 20201127
  Receipt Date: 20201127
  Transmission Date: 20210114
  Serious: Yes (Death)
  Sender: FDA-Public Use
  Company Number: US-ROCHE-2717311

PATIENT
  Sex: Male

DRUGS (4)
  1. ESBRIET [Suspect]
     Active Substance: PIRFENIDONE
     Indication: NON-HODGKIN^S LYMPHOMA
     Dosage: TAKE 3 TABLET(S) BY MOUTH 3 TIMES A DAY?ONGOING: NO
     Route: 048
  2. ESBRIET [Suspect]
     Active Substance: PIRFENIDONE
     Indication: IDIOPATHIC PULMONARY FIBROSIS
  3. ESBRIET [Suspect]
     Active Substance: PIRFENIDONE
     Indication: MANTLE CELL LYMPHOMA
  4. ESBRIET [Suspect]
     Active Substance: PIRFENIDONE
     Indication: B-CELL LYMPHOMA

REACTIONS (1)
  - Death [Fatal]
